FAERS Safety Report 4798883-9 (Version None)
Quarter: 2005Q4

REPORT INFORMATION
  Report Type: 
  Country: None (occurrence: None)
  Receive Date: 20051014
  Receipt Date: 20050818
  Transmission Date: 20060501
  Serious: Yes (Death)
  Sender: FDA-Public Use
  Company Number: PHFR2005GB02825

PATIENT
  Sex: Female

DRUGS (3)
  1. CARBAMAZEPINE [Suspect]
     Indication: HYPOMANIA
     Dosage: 200MG DAILY
     Route: 065
     Dates: start: 20050705, end: 20050805
  2. LITHIUM CARBONATE [Concomitant]
     Dosage: 800MG DAILY
     Route: 065
  3. RISPERIDONE [Concomitant]
     Dosage: 6MG DAILY
     Route: 065

REACTIONS (2)
  - HEPATIC FAILURE [None]
  - JAUNDICE CHOLESTATIC [None]
